FAERS Safety Report 17664226 (Version 2)
Quarter: 2020Q4

REPORT INFORMATION
  Report Type: Spontaneous
  Country: JP (occurrence: JP)
  Receive Date: 20200414
  Receipt Date: 20201222
  Transmission Date: 20210113
  Serious: Yes (Hospitalization, Other)
  Sender: FDA-Public Use
  Company Number: JP-GLAXOSMITHKLINE-JP2020062630

PATIENT
  Age: 73 Year
  Sex: Male
  Weight: 47 kg

DRUGS (13)
  1. LAMICTAL [Suspect]
     Active Substance: LAMOTRIGINE
     Indication: BIPOLAR DISORDER
     Dosage: UNK
     Route: 048
  2. MIRTAZAPINE. [Suspect]
     Active Substance: MIRTAZAPINE
     Indication: BIPOLAR DISORDER
     Dosage: 45 MG
     Route: 048
     Dates: start: 20200409
  3. LIMAS [Suspect]
     Active Substance: LITHIUM CARBONATE
     Indication: BIPOLAR DISORDER
     Dosage: 600 MG
  4. LITHIUM CARBONATE. [Suspect]
     Active Substance: LITHIUM CARBONATE
     Dosage: 600 MG
     Route: 048
     Dates: start: 20200409
  5. LIMAS [Suspect]
     Active Substance: LITHIUM CARBONATE
     Dosage: 400 MG
  6. LAMICTAL [Suspect]
     Active Substance: LAMOTRIGINE
     Dosage: 25 MG, 1D
     Route: 048
     Dates: start: 20200427, end: 20200508
  7. LAMICTAL [Suspect]
     Active Substance: LAMOTRIGINE
     Dosage: 50 MG, 1D
     Route: 048
     Dates: start: 20200509, end: 20200517
  8. LAMICTAL [Suspect]
     Active Substance: LAMOTRIGINE
     Dosage: 25 MG, QOD
     Route: 048
     Dates: start: 20200615, end: 20200628
  9. LAMICTAL [Suspect]
     Active Substance: LAMOTRIGINE
     Dosage: 25 MG, 1D
     Route: 048
     Dates: start: 20200629
  10. REMERON [Suspect]
     Active Substance: MIRTAZAPINE
     Dosage: 45 MG
  11. REMERON [Suspect]
     Active Substance: MIRTAZAPINE
     Dosage: 15 MG
  12. LAMICTAL [Suspect]
     Active Substance: LAMOTRIGINE
     Dosage: 25 MG, QOD
     Route: 048
     Dates: start: 20200409, end: 20200426
  13. LAMICTAL [Suspect]
     Active Substance: LAMOTRIGINE
     Dosage: 100 MG, 1D
     Route: 048
     Dates: end: 201912

REACTIONS (17)
  - Stupor [Recovered/Resolved]
  - Depression [Unknown]
  - Oedema peripheral [Recovered/Resolved]
  - Malaise [Unknown]
  - Delirium [Unknown]
  - Rash [Unknown]
  - Hypertension [Unknown]
  - Thought blocking [Unknown]
  - Speech disorder [Recovered/Resolved]
  - Insomnia [Unknown]
  - Therapy cessation [Unknown]
  - Feeding disorder [Unknown]
  - Bipolar disorder [Unknown]
  - Delusion [Unknown]
  - Apathy [Unknown]
  - Product use issue [Unknown]
  - Depressed level of consciousness [Unknown]

NARRATIVE: CASE EVENT DATE: 2020
